FAERS Safety Report 4780385-7 (Version None)
Quarter: 2005Q3

REPORT INFORMATION
  Report Type: 
  Country: None (occurrence: None)
  Receive Date: 20050926
  Receipt Date: 20050926
  Transmission Date: 20060218
  Serious: Yes (Hospitalization)
  Sender: FDA-Public Use
  Company Number: None

PATIENT
  Age: 78 Year
  Sex: Male
  Weight: 81.1 kg

DRUGS (3)
  1. COLCHICINE  0.6MG [Suspect]
     Indication: GOUT
     Dosage: 0.6MG  DAILY  PO
     Route: 048
  2. CINACALCET      30MG       AMGEN [Suspect]
     Indication: DEPENDENCE ON ENABLING MACHINE OR DEVICE
     Dosage: 30MG  HS  PO
     Route: 048
  3. CINACALCET      30MG       AMGEN [Suspect]
     Indication: HYPERPARATHYROIDISM SECONDARY
     Dosage: 30MG  HS  PO
     Route: 048

REACTIONS (5)
  - DIARRHOEA [None]
  - HAEMODIALYSIS [None]
  - HYPOVOLAEMIC SHOCK [None]
  - HYPOXIA [None]
  - TACHYCARDIA [None]
